FAERS Safety Report 7889060-3 (Version None)
Quarter: 2011Q4

REPORT INFORMATION
  Report Type: 
  Country: None (occurrence: None)
  Receive Date: 20111103
  Receipt Date: 20111021
  Transmission Date: 20120403
  Serious: Yes (Other)
  Sender: FDA-Public Use
  Company Number: DE-UCBSA-044174

PATIENT
  Age: 69 Year
  Sex: Male

DRUGS (9)
  1. L-THYROSIN [Concomitant]
     Indication: HYPOTHYROIDISM
  2. CERTOLIZUMAB PEGOL [Suspect]
     Indication: RHEUMATOID ARTHRITIS
     Route: 058
     Dates: start: 20110527, end: 20110708
  3. PANTOPRAZOLE [Concomitant]
     Indication: GASTRIC ULCER
  4. METOPROLOL TARTRATE [Concomitant]
     Indication: HYPERTENSION
     Dates: start: 20110501
  5. FOLIC ACID [Concomitant]
     Indication: PROPHYLAXIS
     Dosage: QUANTITY SUFFICIENT
  6. CALCIUM + VIT D [Concomitant]
     Indication: OSTEOPOROSIS PROPHYLAXIS
  7. METHOTREXATE [Concomitant]
     Indication: RHEUMATOID ARTHRITIS
     Dosage: QUANTITY SUFFICIENT
     Dates: start: 20020101
  8. DICLOFENAC [Concomitant]
     Indication: RHEUMATOID ARTHRITIS
     Dates: start: 19970101
  9. PREDNISONE [Concomitant]
     Indication: RHEUMATOID ARTHRITIS
     Dates: start: 19970101, end: 20110715

REACTIONS (2)
  - RASH [None]
  - EYELID OEDEMA [None]
